FAERS Safety Report 11650090 (Version 2)
Quarter: 2016Q1

REPORT INFORMATION
  Report Type: Spontaneous
  Country: US (occurrence: US)
  Receive Date: 20151021
  Receipt Date: 20160226
  Transmission Date: 20160525
  Serious: Yes (Other)
  Sender: FDA-Public Use
  Company Number: US-FRI-1000080246

PATIENT
  Sex: Female

DRUGS (1)
  1. VIIBRYD [Suspect]
     Active Substance: VILAZODONE HYDROCHLORIDE
     Dates: end: 2013

REACTIONS (8)
  - Pain in extremity [Recovering/Resolving]
  - Arthritis [Recovering/Resolving]
  - Suicidal ideation [Recovered/Resolved]
  - Polyarthritis [Recovering/Resolving]
  - Arthralgia [Recovering/Resolving]
  - Gait disturbance [Recovering/Resolving]
  - Inflammatory pain [Recovering/Resolving]
  - Job dissatisfaction [Unknown]
